FAERS Safety Report 19051214 (Version 1)
Quarter: 2021Q1

REPORT INFORMATION
  Report Type: Spontaneous
  Country: US (occurrence: US)
  Receive Date: 20210324
  Receipt Date: 20210324
  Transmission Date: 20210420
  Serious: Yes (Hospitalization)
  Sender: FDA-Public Use
  Company Number: None

PATIENT
  Age: 68 Year
  Sex: Female
  Weight: 50.6 kg

DRUGS (3)
  1. RITUXIMAB 600 MG [Suspect]
     Active Substance: RITUXIMAB
     Dates: end: 20210319
  2. GEMCITABINE HYDROCHLORIDE 1000MG [Suspect]
     Active Substance: GEMCITABINE HYDROCHLORIDE
     Dates: end: 20210319
  3. ELOXATIN [Suspect]
     Active Substance: OXALIPLATIN
     Dates: end: 20210319

REACTIONS (3)
  - Muscular weakness [None]
  - Bladder dilatation [None]
  - Pain in extremity [None]

NARRATIVE: CASE EVENT DATE: 20210319
